APPROVED DRUG PRODUCT: IBANDRONATE SODIUM
Active Ingredient: IBANDRONATE SODIUM
Strength: EQ 3MG BASE/3ML
Dosage Form/Route: INJECTABLE;INTRAVENOUS
Application: A203987 | Product #001
Applicant: AVET LIFESCIENCES LTD
Approved: Sep 2, 2014 | RLD: No | RS: No | Type: DISCN